FAERS Safety Report 13258288 (Version 1)
Quarter: 2017Q1

REPORT INFORMATION
  Report Type: Spontaneous
  Country: US (occurrence: US)
  Receive Date: 20170221
  Receipt Date: 20170221
  Transmission Date: 20170428
  Serious: No
  Sender: FDA-Public Use
  Company Number: PHEH2017US004680

PATIENT
  Sex: Female
  Weight: 61.22 kg

DRUGS (2)
  1. PALBOCICLIB [Suspect]
     Active Substance: PALBOCICLIB
     Indication: NEOPLASM MALIGNANT
     Dosage: 1.25 MG, UNK
     Route: 065
     Dates: start: 201604
  2. LETROZOLE. [Suspect]
     Active Substance: LETROZOLE
     Indication: PRODUCT USED FOR UNKNOWN INDICATION
     Dosage: 2.5 MG, UNK
     Route: 065
     Dates: start: 201604

REACTIONS (4)
  - Dry skin [Unknown]
  - Decreased appetite [Unknown]
  - Anaemia [Unknown]
  - Fatigue [Unknown]
